FAERS Safety Report 5085704-2 (Version None)
Quarter: 2006Q3

REPORT INFORMATION
  Report Type: 
  Country: None (occurrence: None)
  Receive Date: 20060822
  Receipt Date: 20060818
  Transmission Date: 20061208
  Serious: Yes (Other)
  Sender: FDA-Public Use
  Company Number: US-JNJFOC-20060605787

PATIENT
  Sex: Female

DRUGS (1)
  1. TOPAMAX [Suspect]
     Indication: DRUG USE FOR UNKNOWN INDICATION
     Route: 048

REACTIONS (10)
  - ALTERED VISUAL DEPTH PERCEPTION [None]
  - BALANCE DISORDER [None]
  - BASEDOW'S DISEASE [None]
  - CONJUNCTIVITIS [None]
  - DIPLOPIA [None]
  - DIZZINESS [None]
  - EXOPHTHALMOS [None]
  - EYE MOVEMENT DISORDER [None]
  - EYE PAIN [None]
  - PUPILLARY REFLEX IMPAIRED [None]
